FAERS Safety Report 10446908 (Version 1)
Quarter: 2014Q3

REPORT INFORMATION
  Report Type: Spontaneous
  Country: HR (occurrence: HR)
  Receive Date: 20140911
  Receipt Date: 20140911
  Transmission Date: 20150326
  Serious: Yes (Life-Threatening, Hospitalization, Other)
  Sender: FDA-Public Use
  Company Number: HR-TEVA-506628ISR

PATIENT
  Age: 61 Year
  Sex: Male
  Weight: 76 kg

DRUGS (2)
  1. SERPENTIL [Suspect]
     Active Substance: ESCITALOPRAM OXALATE
     Indication: DEPRESSION
     Dosage: 10 MILLIGRAM DAILY;
     Route: 048
     Dates: start: 20130923, end: 20130925
  2. LUNATA [Concomitant]
     Indication: SLEEP DISORDER
     Route: 048
     Dates: start: 20130923

REACTIONS (3)
  - Urinary retention [Unknown]
  - Serum ferritin increased [Unknown]
  - Renal cyst [Unknown]

NARRATIVE: CASE EVENT DATE: 20130926
